FAERS Safety Report 22341356 (Version 1)
Quarter: 2023Q2

REPORT INFORMATION
  Report Type: Report from Study
  Country: JP (occurrence: JP)
  Receive Date: 20230518
  Receipt Date: 20230518
  Transmission Date: 20230721
  Serious: Yes (Other)
  Sender: FDA-Public Use
  Company Number: JP-BAUSCH-BL-2023-005676

PATIENT
  Age: 48 Year
  Sex: Male
  Weight: 71.2 kg

DRUGS (4)
  1. DEMSER [Suspect]
     Active Substance: METYROSINE
     Indication: Blood catecholamines increased
     Route: 048
     Dates: start: 20230309, end: 20230315
  2. DEMSER [Suspect]
     Active Substance: METYROSINE
     Route: 048
     Dates: start: 20230316, end: 20230322
  3. DEMSER [Suspect]
     Active Substance: METYROSINE
     Route: 048
     Dates: start: 20230323, end: 20230324
  4. DOXAZOSIN [Concomitant]
     Active Substance: DOXAZOSIN MESYLATE
     Indication: Product used for unknown indication

REACTIONS (4)
  - Delirium [Recovering/Resolving]
  - Amnesia [Recovering/Resolving]
  - Panic disorder [Recovering/Resolving]
  - Anxiety [Recovering/Resolving]

NARRATIVE: CASE EVENT DATE: 20230325
